FAERS Safety Report 18980203 (Version 1)
Quarter: 2021Q1

REPORT INFORMATION
  Report Type: Spontaneous
  Country: US (occurrence: US)
  Receive Date: 20210308
  Receipt Date: 20210308
  Transmission Date: 20210420
  Serious: Yes (Other)
  Sender: FDA-Public Use
  Company Number: US-ROCHE-2777527

PATIENT
  Age: 69 Year
  Sex: Male

DRUGS (1)
  1. OCREVUS [Suspect]
     Active Substance: OCRELIZUMAB
     Indication: SECONDARY PROGRESSIVE MULTIPLE SCLEROSIS
     Route: 042
     Dates: start: 201912

REACTIONS (2)
  - COVID-19 pneumonia [Recovering/Resolving]
  - Multiple sclerosis relapse [Unknown]

NARRATIVE: CASE EVENT DATE: 202101
